FAERS Safety Report 24630959 (Version 1)
Quarter: 2024Q4

REPORT INFORMATION
  Report Type: Spontaneous
  Country: TR (occurrence: TR)
  Receive Date: 20241118
  Receipt Date: 20241118
  Transmission Date: 20250114
  Serious: Yes (Other)
  Sender: TEVA
  Company Number: TR-TEVA-VS-3263628

PATIENT
  Sex: Male

DRUGS (1)
  1. SILDENAFIL CITRATE [Suspect]
     Active Substance: SILDENAFIL CITRATE
     Indication: Product used for unknown indication
     Route: 065
     Dates: start: 2024

REACTIONS (5)
  - Loss of consciousness [Unknown]
  - Product communication issue [Unknown]
  - Palpitations [Unknown]
  - Incorrect dose administered [Unknown]
  - Mental disorder [Unknown]

NARRATIVE: CASE EVENT DATE: 20240101
